FAERS Safety Report 8914822 (Version 2)
Quarter: 2014Q1

REPORT INFORMATION
  Report Type: Report from Study
  Country: DE (occurrence: DE)
  Receive Date: 20121119
  Receipt Date: 20140319
  Transmission Date: 20141002
  Serious: Yes (Death, Hospitalization, Other)
  Sender: FDA-Public Use
  Company Number: DE-ROCHE-1156474

PATIENT
  Age: 66 Year
  Sex: Female
  Weight: 62 kg

DRUGS (7)
  1. BEVACIZUMAB [Suspect]
     Indication: BREAST CANCER METASTATIC
     Route: 042
     Dates: start: 20120109, end: 20120109
  2. BEVACIZUMAB [Suspect]
     Route: 042
     Dates: start: 20121022, end: 20121022
  3. ZOMETA [Concomitant]
     Indication: BREAST CANCER METASTATIC
     Route: 042
     Dates: start: 20120723
  4. FASLODEX [Concomitant]
     Indication: BREAST CANCER METASTATIC
     Route: 030
     Dates: start: 20120423, end: 20121008
  5. VOTUM (GERMANY) [Concomitant]
     Indication: HYPERTENSION
     Route: 048
     Dates: start: 2008
  6. METFORMIN [Concomitant]
     Indication: DIABETES MELLITUS
     Route: 048
  7. PACLITAXEL [Concomitant]
     Indication: BREAST CANCER METASTATIC
     Route: 065
     Dates: start: 20120109, end: 20120326

REACTIONS (3)
  - Ascites [Fatal]
  - Hypoalbuminaemia [Fatal]
  - Malignant neoplasm progression [Fatal]
